FAERS Safety Report 21545153 (Version 2)
Quarter: 2023Q2

REPORT INFORMATION
  Report Type: Report from Study
  Country: US (occurrence: US)
  Receive Date: 20221103
  Receipt Date: 20230519
  Transmission Date: 20230722
  Serious: Yes (Other)
  Sender: FDA-Public Use
  Company Number: US-TAKEDA-2022TUS080957

PATIENT
  Age: 46 Year
  Sex: Female

DRUGS (45)
  1. PARATHYROID HORMONE [Suspect]
     Active Substance: PARATHYROID HORMONE
     Indication: Hypoparathyroidism
     Dosage: 50 MICROGRAM, QD
     Route: 058
     Dates: start: 20161224, end: 201701
  2. PARATHYROID HORMONE [Suspect]
     Active Substance: PARATHYROID HORMONE
     Indication: Hypoparathyroidism
     Dosage: 50 MICROGRAM, QD
     Route: 058
     Dates: start: 20161224, end: 201701
  3. PARATHYROID HORMONE [Suspect]
     Active Substance: PARATHYROID HORMONE
     Indication: Hypoparathyroidism
     Dosage: 50 MICROGRAM, QD
     Route: 058
     Dates: start: 20161224, end: 201701
  4. PARATHYROID HORMONE [Suspect]
     Active Substance: PARATHYROID HORMONE
     Dosage: 75 MICROGRAM, QD
     Route: 058
     Dates: start: 201701, end: 20190907
  5. PARATHYROID HORMONE [Suspect]
     Active Substance: PARATHYROID HORMONE
     Dosage: 75 MICROGRAM, QD
     Route: 058
     Dates: start: 201701, end: 20190907
  6. PARATHYROID HORMONE [Suspect]
     Active Substance: PARATHYROID HORMONE
     Dosage: 75 MICROGRAM, QD
     Route: 058
     Dates: start: 201701, end: 20190907
  7. IMITREX [Concomitant]
     Active Substance: SUMATRIPTAN SUCCINATE
     Indication: Headache
     Dosage: UNK
     Route: 048
     Dates: start: 20171201
  8. FAMOTIDINE [Concomitant]
     Active Substance: FAMOTIDINE
     Indication: Gastrooesophageal reflux disease
     Dosage: UNK
     Route: 048
     Dates: start: 201803
  9. PANTOPRAZOLE [Concomitant]
     Active Substance: PANTOPRAZOLE
     Indication: Gastrooesophageal reflux disease
     Dosage: UNK
     Route: 048
     Dates: start: 201803
  10. TIROSINT [Concomitant]
     Active Substance: LEVOTHYROXINE SODIUM
     Indication: Hypothyroidism
     Dosage: UNK
     Route: 048
     Dates: start: 201503
  11. CARDIZEM [Concomitant]
     Active Substance: DILTIAZEM HYDROCHLORIDE
     Indication: Hypertension
     Dosage: UNK
     Route: 048
     Dates: start: 201401
  12. OXYCODONE [Concomitant]
     Active Substance: OXYCODONE
     Indication: Back pain
     Dosage: UNK
     Route: 048
     Dates: start: 2004
  13. OXYCONTIN [Concomitant]
     Active Substance: OXYCODONE HYDROCHLORIDE
     Indication: Back pain
     Dosage: UNK
     Route: 048
     Dates: start: 2004
  14. VALACYCLOVIR [Concomitant]
     Active Substance: VALACYCLOVIR HYDROCHLORIDE
     Indication: Herpes simplex
     Dosage: UNK
     Route: 048
     Dates: start: 201710
  15. VALIUM [Concomitant]
     Active Substance: DIAZEPAM
     Indication: Insomnia
     Dosage: UNK
     Route: 048
     Dates: start: 2014
  16. ZYRTEC [Concomitant]
     Active Substance: CETIRIZINE HYDROCHLORIDE
     Indication: Rhinitis allergic
     Dosage: UNK
     Route: 048
     Dates: start: 1997, end: 2021
  17. PULMICORT TURBUHALER [Concomitant]
     Active Substance: BUDESONIDE
     Indication: Asthma
     Dosage: UNK
     Route: 055
     Dates: start: 1988, end: 2020
  18. VENTOLIN [Concomitant]
     Active Substance: ALBUTEROL SULFATE
     Indication: Asthma
     Dosage: UNK
     Route: 050
     Dates: start: 1997
  19. COLACE [Concomitant]
     Active Substance: DOCUSATE SODIUM
     Indication: Constipation
     Dosage: UNK
     Route: 048
     Dates: start: 2017
  20. FLUTICASONE [Concomitant]
     Active Substance: FLUTICASONE
     Indication: Rhinitis allergic
     Dosage: UNK
     Route: 045
     Dates: start: 20130524
  21. MOTRIN [Concomitant]
     Active Substance: IBUPROFEN
     Indication: Back pain
     Dosage: UNK
     Route: 048
     Dates: start: 1988
  22. KETOTIFEN [Concomitant]
     Active Substance: KETOTIFEN
     Indication: Eye allergy
     Dosage: UNK
     Route: 061
     Dates: start: 2013
  23. SOMA [Concomitant]
     Active Substance: CARISOPRODOL
     Indication: Back pain
     Dosage: UNK
     Route: 048
     Dates: start: 20180423
  24. CIPROFLOXACIN [Concomitant]
     Active Substance: CIPROFLOXACIN
     Indication: Upper respiratory tract infection
     Dosage: UNK
     Route: 048
     Dates: start: 201809, end: 201810
  25. CIPROFLOXACIN [Concomitant]
     Active Substance: CIPROFLOXACIN
     Indication: Urinary tract infection
     Dosage: UNK
     Route: 048
     Dates: start: 20191024, end: 201910
  26. CIPROFLOXACIN [Concomitant]
     Active Substance: CIPROFLOXACIN
     Indication: Pyelonephritis
     Dosage: UNK
     Route: 048
     Dates: start: 20220329, end: 20220404
  27. CIPROFLOXACIN [Concomitant]
     Active Substance: CIPROFLOXACIN
     Dosage: UNK
     Route: 048
     Dates: start: 20220720, end: 20220726
  28. NITROFURANTOIN [Concomitant]
     Active Substance: NITROFURANTOIN
     Indication: Pyelonephritis
     Dosage: UNK
     Route: 048
     Dates: start: 20190611, end: 20190617
  29. FLOMAX [Concomitant]
     Active Substance: TAMSULOSIN HYDROCHLORIDE
     Indication: Pyelonephritis
     Dosage: UNK
     Route: 048
     Dates: start: 20190611, end: 20190710
  30. AZITHROMYCIN [Concomitant]
     Active Substance: AZITHROMYCIN
     Indication: Upper respiratory tract infection
     Dosage: UNK
     Route: 048
     Dates: start: 20190505, end: 20190509
  31. AZITHROMYCIN [Concomitant]
     Active Substance: AZITHROMYCIN
     Dosage: UNK
     Route: 048
     Dates: start: 201910, end: 201910
  32. AZITHROMYCIN [Concomitant]
     Active Substance: AZITHROMYCIN
     Dosage: UNK
     Route: 048
     Dates: start: 20220525, end: 20220530
  33. BREO ELLIPTA [Concomitant]
     Active Substance: FLUTICASONE FUROATE\VILANTEROL TRIFENATATE
     Indication: Asthma
     Dosage: UNK
     Route: 055
     Dates: start: 202001
  34. GAVISCON [Concomitant]
     Active Substance: ALUMINUM HYDROXIDE\MAGNESIUM CARBONATE
     Indication: Constipation
     Dosage: UNK
     Route: 048
     Dates: start: 202001
  35. LEVOCETIRIZINE DIHYDROCHLORIDE [Concomitant]
     Active Substance: LEVOCETIRIZINE DIHYDROCHLORIDE
     Indication: Rhinitis allergic
     Dosage: UNK
     Route: 048
     Dates: start: 2021
  36. HYDROXYZINE PAMOATE [Concomitant]
     Active Substance: HYDROXYZINE PAMOATE
     Indication: Insomnia
     Dosage: UNK
     Route: 048
     Dates: start: 2021
  37. VITAMIN C [Concomitant]
     Active Substance: ASCORBIC ACID
     Indication: Vitamin supplementation
     Dosage: UNK
     Route: 048
     Dates: start: 2021
  38. OREGANO LEAF OIL [Concomitant]
     Active Substance: OREGANO LEAF OIL
     Indication: Vitamin supplementation
     Dosage: UNK
     Route: 048
     Dates: start: 2021, end: 202111
  39. UNSPECIFIED INGREDIENT [Concomitant]
     Active Substance: UNSPECIFIED INGREDIENT
     Indication: Vitamin supplementation
     Dosage: UNK
     Route: 048
     Dates: start: 2021
  40. ALBUTEROL [Concomitant]
     Active Substance: ALBUTEROL
     Indication: Asthma
     Dosage: UNK
     Route: 055
     Dates: start: 1997
  41. DOXYCYCLINE [Concomitant]
     Active Substance: DOXYCYCLINE
     Indication: Pyelonephritis
     Dosage: UNK
     Route: 048
     Dates: start: 20220720, end: 20220726
  42. METRONIDAZOLE [Concomitant]
     Active Substance: METRONIDAZOLE
     Indication: Bacterial vaginosis
     Dosage: UNK
     Route: 061
     Dates: start: 20220725, end: 20220729
  43. TINIDAZOLE [Concomitant]
     Active Substance: TINIDAZOLE
     Indication: Bacterial vaginosis
     Dosage: UNK
     Route: 048
     Dates: start: 20220725, end: 20220727
  44. LYRICA [Concomitant]
     Active Substance: PREGABALIN
     Indication: Meralgia paraesthetica
     Dosage: UNK
     Route: 048
     Dates: start: 202203
  45. CALCIUM CARBONATE [Concomitant]
     Active Substance: CALCIUM CARBONATE
     Dosage: 750 MILLIGRAM
     Route: 065
     Dates: end: 2019

REACTIONS (1)
  - Pyelonephritis [Recovered/Resolved]

NARRATIVE: CASE EVENT DATE: 20190611
